FAERS Safety Report 4694955-8 (Version None)
Quarter: 2005Q2

REPORT INFORMATION
  Report Type: 
  Country: None (occurrence: None)
  Receive Date: 20050617
  Receipt Date: 20050606
  Transmission Date: 20051028
  Serious: Yes (Other)
  Sender: FDA-Public Use
  Company Number: 215046

PATIENT
  Age: 45 Year
  Sex: Male

DRUGS (5)
  1. MABTHERA(RITUXIMAB) CONC FOR SOLUTION FOR INFUSION [Suspect]
     Indication: CHRONIC LEUKAEMIA
     Dosage: INTRAVENOUS
     Route: 042
     Dates: start: 20050521, end: 20050521
  2. CYCLOPHOSPHAMIDE [Suspect]
     Indication: CHRONIC LEUKAEMIA
     Dosage: INTRAVENOUS
     Route: 042
     Dates: start: 20050522, end: 20050524
  3. FLUDARABINE PHOSPHATE [Suspect]
     Indication: CHRONIC LYMPHOCYTIC LEUKAEMIA
     Dosage: INTRAVENOUS
     Route: 042
     Dates: start: 20050522, end: 20050524
  4. LOSEC (OMEPRAZOLE) [Concomitant]
  5. ALLOPURINOL [Concomitant]

REACTIONS (2)
  - NEUTROPENIC INFECTION [None]
  - TONSILLITIS [None]
